FAERS Safety Report 10174625 (Version 1)
Quarter: 2014Q2

REPORT INFORMATION
  Report Type: Spontaneous
  Country: US (occurrence: US)
  Receive Date: 20140515
  Receipt Date: 20140515
  Transmission Date: 20141212
  Serious: Yes (Hospitalization)
  Sender: FDA-Public Use
  Company Number: US-GLAXOSMITHKLINE-A1072631A

PATIENT
  Age: 52 Year
  Sex: 0

DRUGS (5)
  1. ADVAIR HFA [Suspect]
     Indication: ASTHMA
     Dosage: 1PUFF TWICE PER DAY
     Route: 055
     Dates: start: 2010
  2. VENTOLIN [Suspect]
     Indication: ASTHMA
     Route: 055
  3. LISINOPRIL + HYDROCHLOROTHIAZIDE [Concomitant]
  4. SEROQUEL [Concomitant]
  5. ELOCON [Concomitant]

REACTIONS (5)
  - Road traffic accident [Not Recovered/Not Resolved]
  - Skeletal injury [Not Recovered/Not Resolved]
  - Ankle fracture [Not Recovered/Not Resolved]
  - Amnesia [Not Recovered/Not Resolved]
  - Loss of consciousness [Recovered/Resolved]
